FAERS Safety Report 5951628-9 (Version None)
Quarter: 2008Q4

REPORT INFORMATION
  Report Type: 
  Country: None (occurrence: None)
  Receive Date: 20081113
  Receipt Date: 20081103
  Transmission Date: 20090506
  Serious: Yes (Hospitalization)
  Sender: FDA-Public Use
  Company Number: SE-ASTRAZENECA-2008SE04941

PATIENT
  Age: 56 Year
  Sex: Male

DRUGS (1)
  1. ZESTRIL [Suspect]
     Indication: ESSENTIAL HYPERTENSION
     Route: 048
     Dates: start: 20070117, end: 20070210

REACTIONS (1)
  - ILEUS [None]
